FAERS Safety Report 6370226-9 (Version None)
Quarter: 2009Q3

REPORT INFORMATION
  Report Type: 
  Country: None (occurrence: None)
  Receive Date: 20090918
  Receipt Date: 20090903
  Transmission Date: 20100115
  Serious: Yes (Other)
  Sender: FDA-Public Use
  Company Number: US-DEXPHARM-20091533

PATIENT
  Sex: Male
  Weight: 81.63 kg

DRUGS (1)
  1. OMEPRAZOLE [Suspect]
     Indication: REFLUX GASTRITIS
     Dosage: 20 MG ONCE A DAY, ORAL
     Route: 048
     Dates: end: 20080317

REACTIONS (2)
  - INCORRECT DRUG ADMINISTRATION DURATION [None]
  - RESORPTION BONE INCREASED [None]
